FAERS Safety Report 14785102 (Version 2)
Quarter: 2018Q2

REPORT INFORMATION
  Report Type: Spontaneous
  Country: US (occurrence: US)
  Receive Date: 20180420
  Receipt Date: 20180425
  Transmission Date: 20180711
  Serious: Yes (Hospitalization, Other)
  Sender: FDA-Public Use
  Company Number: US-PFIZER INC-2018159028

PATIENT
  Age: 61 Year
  Sex: Male
  Weight: 67.13 kg

DRUGS (6)
  1. LYRICA [Suspect]
     Active Substance: PREGABALIN
     Indication: PARAESTHESIA
     Dosage: 300 MG, 2X/DAY
     Route: 048
     Dates: start: 2017
  2. OXYMORPHONE [Concomitant]
     Active Substance: OXYMORPHONE
     Indication: PAIN
     Dosage: 10MG 1 TABLET BY MOUTH 4 TIMES A DAY
     Route: 048
     Dates: start: 201703
  3. OXYMORPHONE [Concomitant]
     Active Substance: OXYMORPHONE
     Indication: PAIN
     Dosage: 20MG 1 CAPSULE BY MOUTH TWICE A DAY
     Route: 048
     Dates: start: 2017
  4. LASIX [Concomitant]
     Active Substance: FUROSEMIDE
     Indication: PERIPHERAL SWELLING
     Dosage: 40MG 1 TABLET BY MOUTH ONCE A DAY
     Route: 048
     Dates: start: 201710
  5. OMEPRAZOLE. [Concomitant]
     Active Substance: OMEPRAZOLE
     Indication: GASTROOESOPHAGEAL REFLUX DISEASE
     Dosage: 40 MG, 3X/DAY(40MG 1 CAPSULE BY MOUTH THREE TIMES A HALF HOUR BEFORE MEALS)
     Route: 048
     Dates: start: 1992
  6. ZOLOFT [Concomitant]
     Active Substance: SERTRALINE HYDROCHLORIDE
     Indication: DEPRESSION
     Dosage: 100MG 1 TABLET BY MOUTH ONCE A DAY
     Route: 048
     Dates: start: 2017

REACTIONS (5)
  - Impaired work ability [Not Recovered/Not Resolved]
  - Urinary incontinence [Recovering/Resolving]
  - Fall [Recovered/Resolved with Sequelae]
  - Rib fracture [Recovered/Resolved with Sequelae]
  - Myelitis transverse [Unknown]

NARRATIVE: CASE EVENT DATE: 201710
